FAERS Safety Report 7595905-7 (Version None)
Quarter: 2011Q3

REPORT INFORMATION
  Report Type: 
  Country: None (occurrence: None)
  Receive Date: 20110707
  Receipt Date: 20110628
  Transmission Date: 20111222
  Serious: Yes (Hospitalization, Other)
  Sender: FDA-Public Use
  Company Number: US-ASTRAZENECA-2011SE18302

PATIENT
  Age: 85 Year
  Sex: Female

DRUGS (9)
  1. ALMEDIGDINS [Concomitant]
  2. NEXIUM [Suspect]
     Route: 048
  3. ALBUTEROL SULFATE AUTOHALER [Concomitant]
     Dosage: 1 VIAL Q4H
  4. NYSTATIN EXTERNAL [Concomitant]
     Dosage: 1 TSP QID
     Route: 048
  5. AMLODIPINE BESYLATE [Concomitant]
     Route: 048
  6. METOCLOPRAMIDE HYDROCHLORIDE [Concomitant]
     Dosage: 10 MG Q8H AS NEEDED
     Route: 048
  7. SYMBICORT [Concomitant]
     Dosage: 160/4.5 MCG 2 PUFFS BID
     Route: 055
  8. LEFLUNOMIDE [Concomitant]
     Route: 048
  9. OXYBUTYNIN CHLORIDE [Concomitant]
     Route: 048

REACTIONS (21)
  - NERVOUS SYSTEM DISORDER [None]
  - PERIORBITAL HAEMATOMA [None]
  - NASAL OEDEMA [None]
  - RADIUS FRACTURE [None]
  - FACIAL PAIN [None]
  - OPEN REDUCTION OF FRACTURE [None]
  - DIZZINESS [None]
  - ACTIVITIES OF DAILY LIVING IMPAIRED [None]
  - EXCORIATION [None]
  - LIMB CRUSHING INJURY [None]
  - LOSS OF CONSCIOUSNESS [None]
  - HEAD INJURY [None]
  - EYE PAIN [None]
  - HYPERTENSION [None]
  - CONTUSION [None]
  - FALL [None]
  - HEADACHE [None]
  - LIP SWELLING [None]
  - ULNA FRACTURE [None]
  - MOUTH INJURY [None]
  - EYE SWELLING [None]
